FAERS Safety Report 4407499-5 (Version None)
Quarter: 2004Q3

REPORT INFORMATION
  Report Type: 
  Country: None (occurrence: None)
  Receive Date: 20040721
  Receipt Date: 20040712
  Transmission Date: 20050211
  Serious: Yes (Other)
  Sender: FDA-Public Use
  Company Number: 24578

PATIENT
  Age: 54 Year
  Sex: Male

DRUGS (1)
  1. FLECAINIDE ACETATE [Suspect]
     Dosage: 100 MG (50 MG, 2 IN 1 DAY(S)) ORAL
     Route: 048

REACTIONS (3)
  - CONFUSIONAL STATE [None]
  - DEPRESSION [None]
  - HALLUCINATION, AUDITORY [None]
